FAERS Safety Report 8531166-X (Version None)
Quarter: 2012Q3

REPORT INFORMATION
  Report Type: 
  Country: None (occurrence: None)
  Receive Date: 20120710
  Receipt Date: 20120626
  Transmission Date: 20120928
  Serious: Yes (Other)
  Sender: FDA-Public Use
  Company Number: 2011MA002963

PATIENT
  Sex: Male

DRUGS (23)
  1. METOCLOPRAMIDE [Suspect]
     Dosage: 10 MG;30 MIN AC + HS;PO
     Route: 048
     Dates: start: 20070101, end: 20101201
  2. WARFARIN SODIUM [Concomitant]
  3. TRAVATAN [Concomitant]
  4. GABAPENTIN [Concomitant]
  5. AMLODIPINE [Concomitant]
  6. PANTOPRAZOLE [Concomitant]
  7. FLUNISOLIDE [Concomitant]
  8. LYRICA [Concomitant]
  9. TRAMADOL HYDROCHLORIDE [Concomitant]
  10. PROTONIX [Concomitant]
  11. ALLOPURINOL [Concomitant]
  12. ALDACTAZIDE [Concomitant]
  13. PROMETHAZINE [Concomitant]
  14. HYDROCODONE [Concomitant]
  15. MIDODRINE HYDROCHLORIDE [Concomitant]
  16. SUCRALFATE [Concomitant]
  17. CYCLOBENAZPRINE [Concomitant]
  18. METHYLPREDNSONE [Concomitant]
  19. ACYCLOVIR [Concomitant]
  20. ATENOLOL [Concomitant]
  21. SPIRONOLACTONE [Concomitant]
  22. MEGESTROL ACETATE [Concomitant]
  23. AMOXICILLIN [Concomitant]

REACTIONS (8)
  - EXTRAPYRAMIDAL DISORDER [None]
  - EMOTIONAL DISORDER [None]
  - DYSTONIA [None]
  - TREMOR [None]
  - INJURY [None]
  - TARDIVE DYSKINESIA [None]
  - AKATHISIA [None]
  - ECONOMIC PROBLEM [None]
